FAERS Safety Report 6814703-2 (Version None)
Quarter: 2010Q2

REPORT INFORMATION
  Report Type: 
  Country: None (occurrence: None)
  Receive Date: 20100629
  Receipt Date: 20100617
  Transmission Date: 20101027
  Serious: Yes (Hospitalization)
  Sender: FDA-Public Use
  Company Number: 2010AL003511

PATIENT
  Age: 60 Year
  Sex: Female

DRUGS (14)
  1. DICLOFENAC SODIUM [Suspect]
     Indication: PERICARDITIS
     Dosage: 50 MG;TID;PO
     Route: 048
     Dates: start: 20100420, end: 20100602
  2. ACETYSALICYLIC ACID [Concomitant]
  3. SIMVASTATIN [Concomitant]
  4. MS CONTIN [Concomitant]
  5. LEVOTHYROXINE SODIUM [Concomitant]
  6. TRAMADOL [Concomitant]
  7. ACETAMINOPHEN [Concomitant]
  8. FUROSEMIDE [Concomitant]
  9. TIOTROPIUM BROMIDE [Concomitant]
  10. SERETIDE [Concomitant]
  11. ORAMORPH SR [Concomitant]
  12. GLYCERYL TRINITRATE [Concomitant]
  13. AMOXICILLIN [Concomitant]
  14. CLARITHROMYCIN [Concomitant]

REACTIONS (8)
  - BLOOD UREA INCREASED [None]
  - CHEST PAIN [None]
  - GASTROINTESTINAL HAEMORRHAGE [None]
  - HAEMOGLOBIN DECREASED [None]
  - HYPOPHAGIA [None]
  - NAUSEA [None]
  - NO THERAPEUTIC RESPONSE [None]
  - VOMITING [None]
